FAERS Safety Report 20170134 (Version 1)
Quarter: 2021Q4

REPORT INFORMATION
  Report Type: Spontaneous
  Country: GB (occurrence: None)
  Receive Date: 20211210
  Receipt Date: 20211210
  Transmission Date: 20220304
  Serious: Yes (Other)
  Sender: FDA-Public Use
  Company Number: 2021A852197

PATIENT
  Age: 61 Year
  Sex: Female
  Weight: 79.8 kg

DRUGS (9)
  1. SYMBICORT [Suspect]
     Active Substance: BUDESONIDE\FORMOTEROL FUMARATE DIHYDRATE
     Indication: Asthma
     Dosage: TWO DOSAGE FORM, MORNING AND NIGHT
     Route: 055
     Dates: start: 2020, end: 20211126
  2. ASPIRIN [Concomitant]
     Active Substance: ASPIRIN
     Indication: Clinical trial participant
     Dosage: BLIND ASPIRIN TRIAL (300MG/100MG/PLACEBO)
  3. CALCIUM [Concomitant]
     Active Substance: CALCIUM
  4. ZINC [Concomitant]
     Active Substance: ZINC
  5. MAGNESIUM [Concomitant]
     Active Substance: MAGNESIUM
  6. VITAMIN AND MINERAL SUPPLEMENT [Concomitant]
  7. MONTELUKAST SODIUM [Concomitant]
     Active Substance: MONTELUKAST SODIUM
  8. FISH OIL\OMEGA-3 FATTY ACIDS [Concomitant]
     Active Substance: FISH OIL\OMEGA-3 FATTY ACIDS
  9. OMEPRAZOLE [Concomitant]
     Active Substance: OMEPRAZOLE

REACTIONS (4)
  - Dyspnoea [Recovering/Resolving]
  - Chest discomfort [Unknown]
  - Blood pressure increased [Unknown]
  - Palpitations [Unknown]

NARRATIVE: CASE EVENT DATE: 20210801
